FAERS Safety Report 21483415 (Version 2)
Quarter: 2022Q4

REPORT INFORMATION
  Report Type: Spontaneous
  Country: JP (occurrence: JP)
  Receive Date: 20221020
  Receipt Date: 20221124
  Transmission Date: 20230113
  Serious: No
  Sender: FDA-Public Use
  Company Number: JP-NEUROCRINE BIOSCIENCES INC.-2022NBI07437

PATIENT

DRUGS (3)
  1. VALBENAZINE [Suspect]
     Active Substance: VALBENAZINE
     Indication: Tardive dyskinesia
     Dosage: 80 MILLIGRAM, QD
     Route: 048
     Dates: start: 20220711, end: 20220807
  2. VALBENAZINE [Suspect]
     Active Substance: VALBENAZINE
     Dosage: 40 MILLIGRAM, QD,DURATION 2 WEEKS
     Route: 048
     Dates: start: 20220627, end: 20220710
  3. INVEGA [Concomitant]
     Active Substance: PALIPERIDONE
     Indication: Schizophrenia
     Dosage: UNK
     Dates: start: 20190107

REACTIONS (3)
  - Hallucination, auditory [Recovered/Resolved]
  - Soliloquy [Recovered/Resolved]
  - Agitation [Recovered/Resolved]

NARRATIVE: CASE EVENT DATE: 20220101
